FAERS Safety Report 6530855-6 (Version None)
Quarter: 2010Q1

REPORT INFORMATION
  Report Type: 
  Country: None (occurrence: None)
  Receive Date: 20100108
  Receipt Date: 20090404
  Transmission Date: 20100710
  Serious: No
  Sender: FDA-Public Use
  Company Number: A0778251A

PATIENT
  Sex: Female

DRUGS (2)
  1. LOVAZA [Suspect]
     Indication: DRUG USE FOR UNKNOWN INDICATION
     Dosage: 900MG TWICE PER DAY
     Route: 048
     Dates: start: 20071201, end: 20080101
  2. THERA TEARS [Concomitant]

REACTIONS (3)
  - AXILLARY PAIN [None]
  - CHEST PAIN [None]
  - SKIN ODOUR ABNORMAL [None]
